FAERS Safety Report 4603167-5 (Version None)
Quarter: 2005Q1

REPORT INFORMATION
  Report Type: 
  Country: None (occurrence: None)
  Receive Date: 20050307
  Receipt Date: 20050221
  Transmission Date: 20050727
  Serious: Yes (Life-Threatening, Hospitalization)
  Sender: FDA-Public Use
  Company Number: 05H-028-0289895

PATIENT
  Age: 53 Year
  Sex: Female

DRUGS (9)
  1. STERILE WATER FOR INJECTION [Suspect]
     Dosage: SUBCUTANEOUS
     Route: 058
     Dates: start: 20040916, end: 20041106
  2. PEGETRON [Suspect]
     Indication: HEPATITIS C
     Dosage: SUBCUTANEOUS
     Route: 058
     Dates: start: 20040916, end: 20041106
  3. RIBAVIRIN [Suspect]
     Indication: HEPATITIS C
     Dosage: DAILY, ORAL
     Route: 048
     Dates: start: 20040915, end: 20041111
  4. VERAPAMIL [Concomitant]
  5. PAROXETINE HYDROCHLORIDE [Concomitant]
  6. PANTOPRAZOLE SODIUM [Concomitant]
  7. CANDESARTAN CILEXETIL. [Concomitant]
  8. TRANDOLAPRIN [Concomitant]
  9. VOLTAREN [Concomitant]

REACTIONS (7)
  - ANAEMIA [None]
  - ARTHRITIS BACTERIAL [None]
  - ENCEPHALOPATHY [None]
  - HEPATORENAL FAILURE [None]
  - PLATELET COUNT DECREASED [None]
  - STAPHYLOCOCCAL BACTERAEMIA [None]
  - STAPHYLOCOCCAL SEPSIS [None]
